FAERS Safety Report 6168435-7 (Version None)
Quarter: 2009Q2

REPORT INFORMATION
  Report Type: 
  Country: None (occurrence: None)
  Receive Date: 20090427
  Receipt Date: 20090417
  Transmission Date: 20091009
  Serious: Yes (Death)
  Sender: FDA-Public Use
  Company Number: A0748458A

PATIENT
  Age: 62 Year
  Sex: Male
  Weight: 104.5 kg

DRUGS (13)
  1. AVANDIA [Suspect]
     Dosage: 4MG TWICE PER DAY
     Route: 048
     Dates: start: 19990101, end: 20051207
  2. GLYBURIDE [Concomitant]
  3. GLUCOPHAGE [Concomitant]
  4. HYDROCHLOROTHIAZIDE [Concomitant]
  5. NIFEDIPINE [Concomitant]
  6. PLAVIX [Concomitant]
  7. ATENOLOL [Concomitant]
  8. ISOSORBIDE [Concomitant]
  9. CLONIDINE [Concomitant]
  10. FOLIC ACID [Concomitant]
  11. ALTACE [Concomitant]
  12. DIOVAN [Concomitant]
  13. ADVICOR [Concomitant]

REACTIONS (2)
  - CARDIAC DISORDER [None]
  - MYOCARDIAL INFARCTION [None]
